FAERS Safety Report 4689572-X (Version None)
Quarter: 2005Q2

REPORT INFORMATION
  Report Type: 
  Country: None (occurrence: None)
  Receive Date: 20050613
  Receipt Date: 20050613
  Transmission Date: 20051028
  Serious: Yes (Hospitalization)
  Sender: FDA-Public Use
  Company Number: None

PATIENT
  Sex: Male

DRUGS (13)
  1. VELCADE [Suspect]
     Indication: DIFFUSE LARGE B-CELL LYMPHOMA
     Dosage: 1.3 MG/M2 D1 AND D4 OF 21 DAY CYCLE X6 IV
     Dates: start: 20041015
  2. VELCADE [Suspect]
     Indication: DIFFUSE LARGE B-CELL LYMPHOMA
     Dosage: 1.3 MG/M2 D1 AND D4 OF 21 DAY CYCLE X6 IV
     Dates: start: 20041018
  3. VELCADE [Suspect]
     Indication: DIFFUSE LARGE B-CELL LYMPHOMA
     Dosage: 1.3 MG/M2 D1 AND D4 OF 21 DAY CYCLE X6 IV
     Dates: start: 20041105
  4. VELCADE [Suspect]
     Indication: DIFFUSE LARGE B-CELL LYMPHOMA
     Dosage: 1.3 MG/M2 D1 AND D4 OF 21 DAY CYCLE X6 IV
     Dates: start: 20041108
  5. VELCADE [Suspect]
     Indication: DIFFUSE LARGE B-CELL LYMPHOMA
     Dosage: 1.3 MG/M2 D1 AND D4 OF 21 DAY CYCLE X6 IV
     Dates: start: 20041129
  6. VELCADE [Suspect]
     Indication: DIFFUSE LARGE B-CELL LYMPHOMA
     Dosage: 1.3 MG/M2 D1 AND D4 OF 21 DAY CYCLE X6 IV
     Dates: start: 20041202
  7. VELCADE [Suspect]
     Indication: DIFFUSE LARGE B-CELL LYMPHOMA
     Dosage: 1.3 MG/M2 D1 AND D4 OF 21 DAY CYCLE X6 IV
     Dates: start: 20041209
  8. VELCADE [Suspect]
     Indication: DIFFUSE LARGE B-CELL LYMPHOMA
     Dosage: 1.3 MG/M2 D1 AND D4 OF 21 DAY CYCLE X6 IV
     Dates: start: 20041220
  9. VELCADE [Suspect]
     Indication: DIFFUSE LARGE B-CELL LYMPHOMA
     Dosage: 1.3 MG/M2 D1 AND D4 OF 21 DAY CYCLE X6 IV
     Dates: start: 20041223
  10. VELCADE [Suspect]
     Indication: DIFFUSE LARGE B-CELL LYMPHOMA
     Dosage: 1.3 MG/M2 D1 AND D4 OF 21 DAY CYCLE X6 IV
     Dates: start: 20050110
  11. VELCADE [Suspect]
     Indication: DIFFUSE LARGE B-CELL LYMPHOMA
     Dosage: 1.3 MG/M2 D1 AND D4 OF 21 DAY CYCLE X6 IV
     Dates: start: 20050113
  12. VELCADE [Suspect]
     Indication: DIFFUSE LARGE B-CELL LYMPHOMA
     Dosage: 1.3 MG/M2 D1 AND D4 OF 21 DAY CYCLE X6 IV
     Dates: start: 20050131
  13. VELCADE [Suspect]
     Indication: DIFFUSE LARGE B-CELL LYMPHOMA
     Dosage: 1.3 MG/M2 D1 AND D4 OF 21 DAY CYCLE X6 IV
     Dates: start: 20050203

REACTIONS (2)
  - FALL [None]
  - HIP FRACTURE [None]
